FAERS Safety Report 7005230-0 (Version None)
Quarter: 2010Q3

REPORT INFORMATION
  Report Type: 
  Country: None (occurrence: None)
  Receive Date: 20100920
  Receipt Date: 20100920
  Transmission Date: 20110219
  Serious: No
  Sender: FDA-Public Use
  Company Number: None

PATIENT
  Age: 58 Year
  Sex: Female
  Weight: 67.1324 kg

DRUGS (1)
  1. KY JELLY PERSONAL PRODUCTS CO. MCNEIL-PPC, INC. [Suspect]
     Indication: VULVOVAGINAL DRYNESS
     Dosage: TEASPOONFUL ONCE VAGINAL
     Route: 067
     Dates: start: 20100601

REACTIONS (2)
  - APPLICATION SITE WARMTH [None]
  - PRODUCT SUBSTITUTION ISSUE [None]
